FAERS Safety Report 9643185 (Version 1)
Quarter: 2013Q4

REPORT INFORMATION
  Report Type: Spontaneous
  Country: US (occurrence: US)
  Receive Date: 20131024
  Receipt Date: 20131024
  Transmission Date: 20140711
  Serious: No
  Sender: FDA-Public Use
  Company Number: US-GLAXOSMITHKLINE-A0995123A

PATIENT
  Sex: Male

DRUGS (1)
  1. DUAC [Suspect]
     Route: 061

REACTIONS (2)
  - Drug ineffective [Unknown]
  - Condition aggravated [Unknown]
